FAERS Safety Report 4336822-5 (Version None)
Quarter: 2004Q2

REPORT INFORMATION
  Report Type: 
  Country: None (occurrence: None)
  Receive Date: 20040407
  Receipt Date: 20040322
  Transmission Date: 20050107
  Serious: Yes (Other)
  Sender: FDA-Public Use
  Company Number: A03200400932

PATIENT
  Age: 54 Year
  Sex: Male

DRUGS (5)
  1. AMBIEN [Suspect]
     Dosage: ORAL
     Route: 048
  2. PROZAC [Suspect]
     Dosage: 60 MG ONCE-ORAL
     Route: 048
  3. HYDROCODONE [Concomitant]
  4. SILDENAFIL CITRATE [Concomitant]
  5. AMBIEN [Concomitant]

REACTIONS (14)
  - BALANCE DISORDER [None]
  - BINOCULAR EYE MOVEMENT DISORDER [None]
  - COORDINATION ABNORMAL [None]
  - DYSARTHRIA [None]
  - EYE DISORDER [None]
  - HALLUCINATION [None]
  - HYPOKINESIA [None]
  - IMPAIRED DRIVING ABILITY [None]
  - MEDICATION ERROR [None]
  - NYSTAGMUS [None]
  - PUPILLARY REFLEX IMPAIRED [None]
  - RESPIRATORY RATE DECREASED [None]
  - SPEECH DISORDER [None]
  - TREATMENT NONCOMPLIANCE [None]
